FAERS Safety Report 4809737-3 (Version None)
Quarter: 2005Q4

REPORT INFORMATION
  Report Type: 
  Country: None (occurrence: None)
  Receive Date: 20051024
  Receipt Date: 20051012
  Transmission Date: 20060501
  Serious: Yes (Other)
  Sender: FDA-Public Use
  Company Number: 2005120939

PATIENT
  Age: 71 Year
  Sex: Female
  Weight: 86.1834 kg

DRUGS (5)
  1. ZITHROMAX [Suspect]
     Indication: PNEUMONIA
     Dosage: 2 GRAM (2 GRAM, QD), ORAL
     Route: 048
     Dates: start: 20050818, end: 20050818
  2. DEPAKOTE [Concomitant]
  3. DETROL LA [Concomitant]
  4. EFFEXOR [Concomitant]
  5. SULFAMETHOXAZOLE + TRIMETHOPRIM [Concomitant]

REACTIONS (6)
  - DIARRHOEA [None]
  - HAEMATOCHEZIA [None]
  - MUCOUS STOOLS [None]
  - NODULE ON EXTREMITY [None]
  - OEDEMA PERIPHERAL [None]
  - RASH [None]
